FAERS Safety Report 5745100-9 (Version None)
Quarter: 2008Q2

REPORT INFORMATION
  Report Type: 
  Country: None (occurrence: None)
  Receive Date: 20080521
  Receipt Date: 20080516
  Transmission Date: 20081010
  Serious: Yes (Hospitalization)
  Sender: FDA-Public Use
  Company Number: US-KINGPHARMUSA00001-K200800561

PATIENT

DRUGS (4)
  1. LEVOXYL [Suspect]
     Indication: HYPOTHYROIDISM
     Dosage: 75 MCG, QD
     Route: 048
  2. LAMICTAL [Suspect]
     Indication: BIPOLAR DISORDER
     Dosage: 100 MG, UNK
     Route: 048
     Dates: end: 20080229
  3. HYDROCODONE BITARTRATE [Concomitant]
  4. TOBRADEX  /01042701/ [Concomitant]

REACTIONS (4)
  - GINGIVAL PAIN [None]
  - LIP SWELLING [None]
  - RASH [None]
  - SWELLING FACE [None]
